FAERS Safety Report 19063185 (Version 1)
Quarter: 2021Q1

REPORT INFORMATION
  Report Type: Spontaneous
  Country: US (occurrence: US)
  Receive Date: 20210326
  Receipt Date: 20210326
  Transmission Date: 20210420
  Serious: Yes (Other)
  Sender: FDA-Public Use
  Company Number: None

PATIENT
  Age: 18 Year
  Sex: Female
  Weight: 54 kg

DRUGS (21)
  1. CIPROFLOXAXIN [Concomitant]
     Active Substance: CIPROFLOXACIN
     Dates: start: 20210325
  2. ABATACEPT [Concomitant]
     Active Substance: ABATACEPT
     Dates: start: 20210325, end: 20210325
  3. ECULIZUMAB [Concomitant]
     Active Substance: ECULIZUMAB
     Dates: start: 20210216
  4. FOSCARNET [Concomitant]
     Active Substance: FOSCARNET
     Dates: start: 20210319
  5. BORTEZOMIB. [Concomitant]
     Active Substance: BORTEZOMIB
     Dates: start: 20210325, end: 20210325
  6. NOREPINEPHRINE. [Concomitant]
     Active Substance: NOREPINEPHRINE
     Dates: start: 20210325, end: 20210325
  7. VECURONIUM [Concomitant]
     Active Substance: VECURONIUM BROMIDE
     Dates: start: 20210325, end: 20210326
  8. FENTANYL. [Concomitant]
     Active Substance: FENTANYL
     Dates: start: 20210325
  9. MYCOPHENOLATE [Concomitant]
     Active Substance: MYCOPHENOLIC ACID
     Dates: start: 20210315
  10. VANCOMYCIN [Concomitant]
     Active Substance: VANCOMYCIN
     Dates: start: 20210320
  11. TOCILIZUMAB. [Concomitant]
     Active Substance: TOCILIZUMAB
     Dates: start: 20210325, end: 20210326
  12. EPINEPHRINE. [Concomitant]
     Active Substance: EPINEPHRINE
     Dates: start: 20210325
  13. SULFAMETHOXAZOLE TRIMETHOPRIM [Concomitant]
     Active Substance: SULFAMETHOXAZOLE\TRIMETHOPRIM
     Dates: start: 20210325
  14. QUETIAPINE. [Concomitant]
     Active Substance: QUETIAPINE
     Dates: start: 20210323
  15. LEVETIRACETAM. [Concomitant]
     Active Substance: LEVETIRACETAM
     Dates: start: 20201223
  16. REMDESIVIR. [Suspect]
     Active Substance: REMDESIVIR
     Indication: COVID-19
     Dosage: ?          OTHER FREQUENCY:ONCE;?
     Route: 042
     Dates: start: 20210325, end: 20210326
  17. POSACONAZOLE [Concomitant]
     Active Substance: POSACONAZOLE
     Dates: start: 20210324, end: 20210326
  18. CALCIUM CHLORIDE. [Concomitant]
     Active Substance: CALCIUM CHLORIDE
     Dates: start: 20210320
  19. MEROPENEM. [Concomitant]
     Active Substance: MEROPENEM
     Dates: start: 20210320
  20. MICAFUNGIN. [Concomitant]
     Active Substance: MICAFUNGIN SODIUM
     Dates: start: 20210324
  21. DEXAMETHASONE. [Concomitant]
     Active Substance: DEXAMETHASONE
     Dates: start: 20210325

REACTIONS (5)
  - Respiratory failure [None]
  - Alanine aminotransferase increased [None]
  - Cardiopulmonary failure [None]
  - Pulseless electrical activity [None]
  - Renal failure [None]

NARRATIVE: CASE EVENT DATE: 20210325
